FAERS Safety Report 19569949 (Version 2)
Quarter: 2021Q4

REPORT INFORMATION
  Report Type: Report from Study
  Country: US (occurrence: US)
  Receive Date: 20210716
  Receipt Date: 20211105
  Transmission Date: 20220303
  Serious: No
  Sender: FDA-Public Use
  Company Number: US-IPSEN BIOPHARMACEUTICALS, INC.-2021-17149

PATIENT
  Age: 71 Year
  Sex: Female

DRUGS (1)
  1. SOMATULINE DEPOT [Suspect]
     Active Substance: LANREOTIDE ACETATE
     Indication: Carcinoid syndrome
     Dosage: 120 MG
     Route: 058
     Dates: start: 201904

REACTIONS (6)
  - Malaise [Unknown]
  - Gastric disorder [Unknown]
  - Diarrhoea [Unknown]
  - Flatulence [Unknown]
  - Abdominal pain [Unknown]
  - Illness [Unknown]

NARRATIVE: CASE EVENT DATE: 20211023
